FAERS Safety Report 16843059 (Version 1)
Quarter: 2019Q3

REPORT INFORMATION
  Report Type: Spontaneous
  Country: US (occurrence: US)
  Receive Date: 20190924
  Receipt Date: 20190924
  Transmission Date: 20191005
  Serious: No
  Sender: FDA-Public Use
  Company Number: US-ALLERGAN-1929064US

PATIENT
  Age: 98 Year
  Sex: Male

DRUGS (1)
  1. LEXAPRO [Suspect]
     Active Substance: ESCITALOPRAM OXALATE
     Indication: PRODUCT USED FOR UNKNOWN INDICATION
     Dosage: UNK
     Route: 048

REACTIONS (6)
  - Mental disorder [Unknown]
  - Aggression [Unknown]
  - Drug ineffective [Unknown]
  - Drug intolerance [Unknown]
  - Agitation [Unknown]
  - Adverse event [Unknown]
